FAERS Safety Report 5602843-5 (Version None)
Quarter: 2008Q1

REPORT INFORMATION
  Report Type: 
  Country: None (occurrence: None)
  Receive Date: 20080125
  Receipt Date: 20080115
  Transmission Date: 20080703
  Serious: Yes (Hospitalization)
  Sender: FDA-Public Use
  Company Number: FR-ABBOTT-08P-056-0433822-00

PATIENT
  Sex: Male

DRUGS (3)
  1. DEPAKENE [Suspect]
     Indication: EPILEPSY
     Route: 048
     Dates: start: 20070904, end: 20070911
  2. CLOBAZAM [Suspect]
     Indication: EPILEPSY
     Route: 048
     Dates: start: 20070904
  3. CLOBAZAM [Suspect]
     Route: 048
     Dates: start: 20070901

REACTIONS (9)
  - AGITATION [None]
  - BLOOD BILIRUBIN INCREASED [None]
  - BLOOD LACTIC ACID INCREASED [None]
  - CLONUS [None]
  - CONFUSIONAL STATE [None]
  - DISORIENTATION [None]
  - DRUG LEVEL INCREASED [None]
  - ENCEPHALOPATHY [None]
  - EXTENSOR PLANTAR RESPONSE [None]
